FAERS Safety Report 25286988 (Version 1)
Quarter: 2025Q2

REPORT INFORMATION
  Report Type: Spontaneous
  Country: CA (occurrence: CA)
  Receive Date: 20250509
  Receipt Date: 20250509
  Transmission Date: 20250717
  Serious: Yes (Other)
  Sender: MACLEODS
  Company Number: CA-MLMSERVICE-20250425-PI490024-00072-1

PATIENT

DRUGS (2)
  1. LIDOCAINE [Suspect]
     Active Substance: LIDOCAINE
     Indication: Anaesthesia eye
     Route: 065
  2. BUPIVACAINE [Suspect]
     Active Substance: BUPIVACAINE
     Indication: Anaesthesia eye

REACTIONS (3)
  - Ophthalmoplegia [Recovered/Resolved]
  - Eyelid ptosis [Recovered/Resolved]
  - Hypoaesthesia [Recovered/Resolved]
